FAERS Safety Report 23816332 (Version 1)
Quarter: 2024Q2

REPORT INFORMATION
  Report Type: Spontaneous
  Country: FR (occurrence: FR)
  Receive Date: 20240503
  Receipt Date: 20240503
  Transmission Date: 20240716
  Serious: Yes (Hospitalization)
  Sender: FDA-Public Use
  Company Number: None

PATIENT
  Age: 87 Year
  Sex: Male

DRUGS (2)
  1. PREGABALIN [Suspect]
     Active Substance: PREGABALIN
     Indication: Product used for unknown indication
     Dosage: 200 MILLIGRAM, QD, 1 TOTAL, LUNCH
     Route: 048
     Dates: start: 20240328, end: 20240328
  2. PREGABALIN [Suspect]
     Active Substance: PREGABALIN
     Dosage: 400 MILLIGRAM ,QD, 1 TOTAL LUNCH
     Route: 048
     Dates: start: 20240328, end: 20240328

REACTIONS (3)
  - Generalised tonic-clonic seizure [Recovered/Resolved]
  - Somnolence [Recovered/Resolved]
  - Product dispensing error [Unknown]

NARRATIVE: CASE EVENT DATE: 20240328
